FAERS Safety Report 7942716-6 (Version None)
Quarter: 2011Q4

REPORT INFORMATION
  Report Type: 
  Country: None (occurrence: None)
  Receive Date: 20111122
  Receipt Date: 20110721
  Transmission Date: 20120403
  Serious: Yes (Other)
  Sender: FDA-Public Use
  Company Number: PHHY2011US52631

PATIENT
  Age: 42 Year
  Sex: Female

DRUGS (9)
  1. LYRICA [Concomitant]
  2. LEXAPRO [Concomitant]
  3. TEGRETOL [Concomitant]
  4. LEVETIRACETAM [Concomitant]
  5. PROVENTIL (SALBUTAMOL SULFATE) INHALER [Concomitant]
  6. GILENYA [Suspect]
     Indication: RELAPSING-REMITTING MULTIPLE SCLEROSIS
     Dosage: 0.5 MG, QD, ORAL
     Route: 048
     Dates: start: 20110128
  7. PROVIGIL [Concomitant]
  8. JUVEL (VITAMINS NOS) [Concomitant]
  9. FLOVENT (FLUTICASONE PROPIONATE) INHALER [Concomitant]

REACTIONS (1)
  - HYPERTENSION [None]
